FAERS Safety Report 6660339-6 (Version None)
Quarter: 2010Q1

REPORT INFORMATION
  Report Type: 
  Country: None (occurrence: None)
  Receive Date: 20100331
  Receipt Date: 20100319
  Transmission Date: 20100710
  Serious: Yes (Other)
  Sender: FDA-Public Use
  Company Number: CA-JNJFOC-20100306631

PATIENT
  Sex: Female
  Weight: 45 kg

DRUGS (10)
  1. REMICADE [Suspect]
     Indication: COLITIS ULCERATIVE
     Route: 042
     Dates: start: 20080616, end: 20100209
  2. REMICADE [Suspect]
     Route: 042
     Dates: start: 20080616, end: 20100209
  3. REMICADE [Suspect]
     Route: 042
     Dates: start: 20080616, end: 20100209
  4. REMICADE [Suspect]
     Route: 042
     Dates: start: 20080616, end: 20100209
  5. SOLU-CORTEF [Concomitant]
     Indication: PREMEDICATION
     Route: 042
  6. SOLU-CORTEF [Concomitant]
     Route: 042
  7. SOLU-CORTEF [Concomitant]
     Route: 042
  8. SOLU-CORTEF [Concomitant]
     Route: 042
  9. BENADRYL [Concomitant]
     Indication: PREMEDICATION
     Route: 048
  10. BENADRYL [Concomitant]
     Route: 048

REACTIONS (6)
  - COLITIS ULCERATIVE [None]
  - MIGRAINE [None]
  - MUSCULOSKELETAL STIFFNESS [None]
  - NAUSEA [None]
  - RASH [None]
  - SERUM SICKNESS-LIKE REACTION [None]
